FAERS Safety Report 4785762-6 (Version None)
Quarter: 2005Q3

REPORT INFORMATION
  Report Type: 
  Country: None (occurrence: None)
  Receive Date: 20050929
  Receipt Date: 20050919
  Transmission Date: 20060218
  Serious: Yes (Death)
  Sender: FDA-Public Use
  Company Number: US-2005-019386

PATIENT
  Age: 43 Year
  Sex: Male

DRUGS (1)
  1. BETASERON (INTERFERON BETA - 1B) INJECTION, 250UG [Suspect]
     Indication: MULTIPLE SCLEROSIS
     Dates: start: 19960809

REACTIONS (1)
  - DIABETES MELLITUS [None]
